FAERS Safety Report 10213386 (Version 1)
Quarter: 2014Q2

REPORT INFORMATION
  Report Type: Spontaneous
  Country: US (occurrence: None)
  Receive Date: 20140529
  Receipt Date: 20140529
  Transmission Date: 20141212
  Serious: Yes (Other)
  Sender: FDA-Public Use
  Company Number: B0997000A

PATIENT
  Age: 69 Year
  Sex: Female

DRUGS (5)
  1. ACYCLOVIR (FORMULATION UNKNOWN) (ACYCLOVIR) [Suspect]
     Indication: HERPES ZOSTER
     Dosage: FIVE TIMES A DAY
     Route: 048
  2. ACYCLOVIR (FORMULATION UNKNOWN) (ACYCLOVIR) [Suspect]
     Indication: HERPES ZOSTER
     Route: 042
  3. KETOROLAC TROMETAMOL [Suspect]
     Indication: HERPES ZOSTER
  4. ONDANSETRON HYDROCHLORIDE [Concomitant]
  5. PREDNISONE [Concomitant]

REACTIONS (11)
  - Nausea [None]
  - Dizziness [None]
  - Rash vesicular [None]
  - Confusional state [None]
  - Aphasia [None]
  - Hallucination, visual [None]
  - Dysphemia [None]
  - Leukocytosis [None]
  - Renal failure acute [None]
  - Neurotoxicity [None]
  - Toxicity to various agents [None]
